FAERS Safety Report 13540466 (Version 1)
Quarter: 2017Q2

REPORT INFORMATION
  Report Type: Report from Study
  Country: US (occurrence: DK)
  Receive Date: 20170512
  Receipt Date: 20170512
  Transmission Date: 20170830
  Serious: Yes (Other)
  Sender: FDA-Public Use
  Company Number: US-BAYER-2017-087659

PATIENT
  Sex: Female

DRUGS (1)
  1. LNG-IUS [Suspect]
     Active Substance: LEVONORGESTREL
     Indication: CONTRACEPTION
     Route: 015

REACTIONS (2)
  - Papilloedema [None]
  - Idiopathic intracranial hypertension [None]
